FAERS Safety Report 24726887 (Version 1)
Quarter: 2024Q4

REPORT INFORMATION
  Report Type: Spontaneous
  Country: US (occurrence: None)
  Receive Date: 20241212
  Receipt Date: 20241212
  Transmission Date: 20250115
  Serious: Yes (Hospitalization)
  Sender: Public
  Company Number: None

PATIENT
  Age: 40 Year
  Sex: Female
  Weight: 107.5 kg

DRUGS (3)
  1. FEMARA [Suspect]
     Active Substance: LETROZOLE
     Dates: end: 20241112
  2. CARBOPLATIN [Suspect]
     Active Substance: CARBOPLATIN
  3. PACLITAXEL [Suspect]
     Active Substance: PACLITAXEL

REACTIONS (7)
  - Peripheral sensory neuropathy [None]
  - Anaemia [None]
  - Platelet count decreased [None]
  - Vomiting [None]
  - Flatulence [None]
  - Treatment delayed [None]
  - X-ray gastrointestinal tract abnormal [None]

NARRATIVE: CASE EVENT DATE: 20241112
